FAERS Safety Report 9511785 (Version 5)
Quarter: 2013Q4

REPORT INFORMATION
  Report Type: Spontaneous
  Country: US (occurrence: US)
  Receive Date: 20130910
  Receipt Date: 20131217
  Transmission Date: 20140711
  Serious: Yes (Hospitalization, Other)
  Sender: FDA-Public Use
  Company Number: US-009507513-1201USA03046

PATIENT
  Sex: Female
  Weight: 84.35 kg

DRUGS (6)
  1. FOSAMAX [Suspect]
     Indication: OSTEOPOROSIS
     Dosage: 70 MG, UNK
     Route: 048
     Dates: start: 200207, end: 200708
  2. FOSAMAX [Suspect]
     Dosage: 70 MG, QD
     Route: 048
  3. CALCIUM (UNSPECIFIED) [Concomitant]
     Dosage: 1200 MG, QD
     Dates: start: 2000
  4. VITAMIN D (UNSPECIFIED) [Concomitant]
     Dosage: 1000 MG, QD
     Dates: start: 2000
  5. CORTICOSTEROIDS (UNSPECIFIED) [Concomitant]
     Dosage: UNK
     Dates: start: 1999, end: 2012
  6. HORMONES (UNSPECIFIED) [Concomitant]
     Dosage: UNK
     Dates: start: 1996, end: 2009

REACTIONS (73)
  - Intramedullary rod insertion [Unknown]
  - Intramedullary rod insertion [Unknown]
  - Internal fixation of fracture [Unknown]
  - Bone graft [Unknown]
  - Haemorrhage [Unknown]
  - Hip arthroplasty [Unknown]
  - Humerus fracture [Unknown]
  - Femur fracture [Unknown]
  - Metastatic lymphoma [Unknown]
  - Cholecystectomy [Unknown]
  - Device malfunction [Unknown]
  - Non-Hodgkin^s lymphoma [Unknown]
  - Fracture nonunion [Unknown]
  - Intramedullary rod insertion [Unknown]
  - Medical device removal [Unknown]
  - Open reduction of fracture [Unknown]
  - Open reduction of fracture [Unknown]
  - Medical device removal [Unknown]
  - Humerus fracture [Unknown]
  - Anaemia postoperative [Unknown]
  - Medical device removal [Unknown]
  - Fracture nonunion [Unknown]
  - Femur fracture [Unknown]
  - Femur fracture [Recovered/Resolved]
  - Femur fracture [Unknown]
  - Fracture delayed union [Unknown]
  - Staphylococcal infection [Unknown]
  - Impaired healing [Unknown]
  - Foot fracture [Unknown]
  - Foot fracture [Unknown]
  - Foot fracture [Unknown]
  - Foot fracture [Unknown]
  - Hypertension [Unknown]
  - Anxiety [Unknown]
  - Lymphadenectomy [Unknown]
  - Lymphadenectomy [Unknown]
  - Lymphadenectomy [Unknown]
  - Wound dehiscence [Recovered/Resolved]
  - Osteopenia [Unknown]
  - Flank pain [Unknown]
  - Mass [Unknown]
  - Weight increased [Unknown]
  - Hysterectomy [Unknown]
  - Oophorectomy [Unknown]
  - Antinuclear antibody positive [Unknown]
  - Osteoarthritis [Unknown]
  - Carpal tunnel syndrome [Unknown]
  - Hyperlipidaemia [Unknown]
  - Heart rate increased [Unknown]
  - Device breakage [Unknown]
  - Device dislocation [Unknown]
  - Fall [Unknown]
  - Purulence [Unknown]
  - Haematoma [Unknown]
  - Inappropriate schedule of drug administration [Unknown]
  - Sleep disorder [Unknown]
  - Weight increased [Unknown]
  - Heart rate irregular [Unknown]
  - Paraesthesia [Unknown]
  - Fatigue [Unknown]
  - Feeling cold [Unknown]
  - Increased tendency to bruise [Unknown]
  - Rib fracture [Unknown]
  - Spinal osteoarthritis [Unknown]
  - Synovial cyst [Unknown]
  - Osteoarthritis [Unknown]
  - Irritable bowel syndrome [Unknown]
  - Hypotension [Unknown]
  - Neoplasm [Unknown]
  - Asthma [Unknown]
  - Oedema peripheral [Unknown]
  - Back pain [Not Recovered/Not Resolved]
  - Abdominal pain [Unknown]
